FAERS Safety Report 4512209-7 (Version None)
Quarter: 2004Q4

REPORT INFORMATION
  Report Type: 
  Country: None (occurrence: None)
  Receive Date: 20041123
  Receipt Date: 20041116
  Transmission Date: 20050328
  Serious: Yes (Life-Threatening, Disabling)
  Sender: FDA-Public Use
  Company Number: US-JNJFOC-20041104421

PATIENT
  Age: 76 Year
  Sex: Female

DRUGS (4)
  1. MOTRIN [Suspect]
     Indication: PAIN MANAGEMENT
  2. ACTONEL [Concomitant]
  3. THYROID MEDICATION (THYROID HORMONES) [Concomitant]
  4. MANY ANTIBIIOTICS (ANTIBIOTICS) [Concomitant]

REACTIONS (2)
  - DYSPNOEA [None]
  - OROPHARYNGEAL SWELLING [None]
